FAERS Safety Report 10035571 (Version 1)
Quarter: 2014Q1

REPORT INFORMATION
  Report Type: Spontaneous
  Country: US (occurrence: US)
  Receive Date: 20140325
  Receipt Date: 20140325
  Transmission Date: 20141002
  Serious: No
  Sender: FDA-Public Use
  Company Number: US-009507513-1403USA005101

PATIENT
  Age: 50 Year
  Sex: Female

DRUGS (4)
  1. DULERA [Suspect]
     Indication: ASTHMA
     Dosage: TWO PUFFS TWICE DAILY
     Route: 055
     Dates: start: 201312
  2. FLONASE [Concomitant]
  3. SINGULAIR [Concomitant]
  4. TRAZODONE HYDROCHLORIDE [Concomitant]

REACTIONS (3)
  - Viral infection [Recovering/Resolving]
  - Drug dose omission [Unknown]
  - Product quality issue [Unknown]
